FAERS Safety Report 6761330-1 (Version None)
Quarter: 2010Q2

REPORT INFORMATION
  Report Type: 
  Country: None (occurrence: None)
  Receive Date: 20100608
  Receipt Date: 20100528
  Transmission Date: 20101027
  Serious: Yes (Hospitalization)
  Sender: FDA-Public Use
  Company Number: US-GILEAD-2010-0028327

PATIENT
  Sex: Female
  Weight: 77.18 kg

DRUGS (19)
  1. LETAIRIS [Suspect]
     Indication: PULMONARY ARTERIAL HYPERTENSION
     Route: 048
     Dates: start: 20080730
  2. LETAIRIS [Suspect]
     Route: 048
     Dates: start: 20080311, end: 20080730
  3. TYVASO [Concomitant]
  4. REVATIO [Concomitant]
  5. CARTIA XT [Concomitant]
  6. METHOTREXATE [Concomitant]
  7. PREDNISONE [Concomitant]
  8. XOPENOX [Concomitant]
  9. FLONASE [Concomitant]
  10. LUMIGAN [Concomitant]
  11. ALPHAGAN [Concomitant]
  12. PROTONIX [Concomitant]
  13. DARVOCET [Concomitant]
  14. STARLIX [Concomitant]
  15. ROBITUSSIN [Concomitant]
  16. FOLIC ACID [Concomitant]
  17. CALCIUM-D [Concomitant]
  18. MAG-OXIDE [Concomitant]
  19. ASPIRIN [Concomitant]

REACTIONS (7)
  - BRONCHITIS [None]
  - CHEST DISCOMFORT [None]
  - DIZZINESS [None]
  - DYSPNOEA [None]
  - PALPITATIONS [None]
  - PNEUMONIA [None]
  - PYREXIA [None]
